FAERS Safety Report 17185016 (Version 1)
Quarter: 2019Q4

REPORT INFORMATION
  Report Type: Spontaneous
  Country: US (occurrence: US)
  Receive Date: 20191220
  Receipt Date: 20191220
  Transmission Date: 20200122
  Serious: Yes (Death, Other)
  Sender: FDA-Public Use
  Company Number: US-INCYTE CORPORATION-2019IN012736

PATIENT

DRUGS (2)
  1. JAKAFI [Suspect]
     Active Substance: RUXOLITINIB
     Indication: MYELOFIBROSIS
     Dosage: 10 MILLIGRAM (2 TABS QAM, 1 TAB QPM)
     Route: 065
     Dates: start: 201802
  2. JAKAFI [Suspect]
     Active Substance: RUXOLITINIB
     Dosage: 10 MILLIGRAM (2 TABS QAM, 1 TAB QPM)
     Route: 065
     Dates: start: 201803

REACTIONS (1)
  - Death [Fatal]

NARRATIVE: CASE EVENT DATE: 20191115
